FAERS Safety Report 10395064 (Version 1)
Quarter: 2014Q3

REPORT INFORMATION
  Report Type: Spontaneous
  Country: US (occurrence: US)
  Receive Date: 20140820
  Receipt Date: 20140820
  Transmission Date: 20150326
  Serious: No
  Sender: FDA-Public Use
  Company Number: US-009507513-1408USA006947

PATIENT
  Age: 22 Year
  Sex: Female
  Weight: 106.58 kg

DRUGS (2)
  1. NEXPLANON [Suspect]
     Active Substance: ETONOGESTREL
     Indication: CONTRACEPTION
     Dosage: 3 YEAR IMPLANT, IMPLANT IN RIGHT ARM
     Route: 059
     Dates: start: 20131220
  2. LEVOTHYROXINE SODIUM. [Concomitant]
     Active Substance: LEVOTHYROXINE SODIUM
     Indication: THYROID DISORDER

REACTIONS (14)
  - Urinary tract infection [Unknown]
  - Limb injury [Unknown]
  - Headache [Unknown]
  - Breast tenderness [Unknown]
  - Device dislocation [Not Recovered/Not Resolved]
  - Nausea [Unknown]
  - Pain [Unknown]
  - Abdominal distension [Unknown]
  - Implant site pain [Unknown]
  - Device kink [Not Recovered/Not Resolved]
  - Muscle spasms [Unknown]
  - Diarrhoea [Unknown]
  - Dizziness [Unknown]
  - Device breakage [Not Recovered/Not Resolved]

NARRATIVE: CASE EVENT DATE: 2014
